FAERS Safety Report 22017174 (Version 1)
Quarter: 2023Q1

REPORT INFORMATION
  Report Type: Spontaneous
  Country: DE (occurrence: None)
  Receive Date: 20230221
  Receipt Date: 20230221
  Transmission Date: 20230417
  Serious: Yes (Life-Threatening, Other)
  Sender: FDA-Public Use
  Company Number: 2023A041380

PATIENT
  Age: 60 Year
  Sex: Female
  Weight: 135 kg

DRUGS (12)
  1. BUDESONIDE\FORMOTEROL\GLYCOPYRRONIUM [Suspect]
     Active Substance: BUDESONIDE\FORMOTEROL\GLYCOPYRRONIUM
     Dosage: UNKNOWN
     Route: 055
  2. ELIQUIS [Concomitant]
     Active Substance: APIXABAN
  3. DIGITOXIN [Concomitant]
     Active Substance: DIGITOXIN
  4. SPIRONOLACTONE [Concomitant]
     Active Substance: SPIRONOLACTONE
  5. PANTOPRAZOLE SODIUM [Concomitant]
     Active Substance: PANTOPRAZOLE SODIUM
  6. LEVOTHYROXINE [Concomitant]
     Active Substance: LEVOTHYROXINE
  7. NEBIVOLOL [Concomitant]
     Active Substance: NEBIVOLOL
  8. OLMESARTAN [Concomitant]
     Active Substance: OLMESARTAN
  9. ROFLMUMILAST [Concomitant]
  10. PRAMIPEXOLE [Concomitant]
     Active Substance: PRAMIPEXOLE
  11. MOXOMIDINE [Concomitant]
  12. OXYCODONE [Concomitant]
     Active Substance: OXYCODONE

REACTIONS (21)
  - Obstructive sleep apnoea syndrome [Unknown]
  - Acute kidney injury [Unknown]
  - Renal failure [Unknown]
  - Pulmonary embolism [Unknown]
  - Bronchiectasis [Unknown]
  - Asthma [Unknown]
  - Emphysema [Unknown]
  - Restless legs syndrome [Unknown]
  - Atrial fibrillation [Unknown]
  - Rectal haemorrhage [Unknown]
  - Haemoptysis [Unknown]
  - Hypercoagulation [Unknown]
  - Hypertension [Unknown]
  - Peripheral venous disease [Unknown]
  - Thyroid disorder [Unknown]
  - Obstructive airways disorder [Unknown]
  - Obesity [Unknown]
  - Renal cyst [Unknown]
  - Hyperplasia [Unknown]
  - Pseudomonas infection [Unknown]
  - Lung hyperinflation [Unknown]
